FAERS Safety Report 6165623-0 (Version None)
Quarter: 2009Q2

REPORT INFORMATION
  Report Type: 
  Country: None (occurrence: None)
  Receive Date: 20090420
  Receipt Date: 20080410
  Transmission Date: 20091009
  Serious: Yes (Other)
  Sender: FDA-Public Use
  Company Number: 2008009195

PATIENT

DRUGS (1)
  1. BENADRYL [Suspect]
     Dosage: 12 TABLETS, ONCE, ORAL
     Route: 048
     Dates: start: 20080410, end: 20080410

REACTIONS (1)
  - OVERDOSE [None]
